FAERS Safety Report 10517913 (Version 1)
Quarter: 2014Q4

REPORT INFORMATION
  Report Type: Report from Study
  Country: DE (occurrence: DE)
  Receive Date: 20141015
  Receipt Date: 20141015
  Transmission Date: 20150528
  Serious: Yes (Hospitalization)
  Sender: FDA-Public Use
  Company Number: DE-ROCHE-1473889

PATIENT
  Age: 75 Year
  Sex: Female
  Weight: 57 kg

DRUGS (6)
  1. PACLITAXEL. [Concomitant]
     Active Substance: PACLITAXEL
     Route: 042
     Dates: start: 20141002, end: 20141009
  2. RAMIPRIL. [Concomitant]
     Active Substance: RAMIPRIL
     Indication: HYPERTENSION
     Route: 048
     Dates: start: 20000101
  3. CIPROBAY [Concomitant]
     Active Substance: CIPROFLOXACIN
     Indication: PYREXIA
     Route: 048
     Dates: start: 20140904, end: 20140909
  4. BEVACIZUMAB [Suspect]
     Active Substance: BEVACIZUMAB
     Indication: BREAST CANCER
     Route: 042
     Dates: start: 20140814
  5. DEXAMETHASON [Concomitant]
     Active Substance: DEXAMETHASONE
     Dosage: PER CYCLE
     Route: 042
     Dates: start: 20140731
  6. PACLITAXEL. [Concomitant]
     Active Substance: PACLITAXEL
     Indication: BREAST CANCER
     Route: 042
     Dates: start: 20140731, end: 20140814

REACTIONS (1)
  - Pneumonia [Recovered/Resolved]

NARRATIVE: CASE EVENT DATE: 20140909
